FAERS Safety Report 16774609 (Version 1)
Quarter: 2019Q3

REPORT INFORMATION
  Report Type: Spontaneous
  Country: CA (occurrence: CA)
  Receive Date: 20190905
  Receipt Date: 20190905
  Transmission Date: 20191005
  Serious: Yes (Other)
  Sender: FDA-Public Use
  Company Number: CA-TEVA-2019-CA-1102017

PATIENT
  Age: 53 Year
  Sex: Female

DRUGS (1)
  1. CYCLOSPORINE. [Suspect]
     Active Substance: CYCLOSPORINE
     Dosage: 200 MILLIGRAM DAILY;

REACTIONS (20)
  - Flushing [Unknown]
  - Headache [Unknown]
  - Mood altered [Unknown]
  - Coordination abnormal [Unknown]
  - Dry eye [Unknown]
  - Hypertension [Unknown]
  - Parosmia [Unknown]
  - Abdominal distension [Unknown]
  - Dry mouth [Unknown]
  - Nausea [Unknown]
  - Peripheral swelling [Unknown]
  - Vision blurred [Unknown]
  - Urinary retention [Unknown]
  - Diarrhoea [Unknown]
  - Hyperhidrosis [Unknown]
  - Confusional state [Unknown]
  - Dysuria [Unknown]
  - Memory impairment [Unknown]
  - Retching [Unknown]
  - Clumsiness [Unknown]
